FAERS Safety Report 18660343 (Version 1)
Quarter: 2020Q4

REPORT INFORMATION
  Report Type: Spontaneous
  Country: AT (occurrence: AT)
  Receive Date: 20201223
  Receipt Date: 20201223
  Transmission Date: 20210114
  Serious: Yes (Other)
  Sender: FDA-Public Use
  Company Number: AT-BAXTER-2020BAX026393

PATIENT
  Age: 44 Year
  Sex: Male

DRUGS (19)
  1. DOXIL [Suspect]
     Active Substance: DOXORUBICIN HYDROCHLORIDE
     Indication: DIFFUSE LARGE B-CELL LYMPHOMA
     Dosage: 8 CYCLES-RCHOP
     Route: 065
     Dates: end: 200704
  2. POLATUZUMAB VEDOTIN. [Suspect]
     Active Substance: POLATUZUMAB VEDOTIN
     Indication: DIFFUSE LARGE B-CELL LYMPHOMA
     Route: 065
     Dates: start: 20200525
  3. BENDAMUSTINE [Suspect]
     Active Substance: BENDAMUSTINE
     Indication: DIFFUSE LARGE B-CELL LYMPHOMA
     Dosage: 1 CYCLE MAINTENANCE R-BENDAMUSTINE
     Route: 065
     Dates: start: 201405
  4. MABTHERA [Suspect]
     Active Substance: RITUXIMAB
     Dosage: 1 CYCLE MAINTENANCE R-BENDAMUSTINE
     Route: 065
     Dates: start: 201405
  5. MABTHERA [Suspect]
     Active Substance: RITUXIMAB
     Dosage: 3 CYCLES - R-DHAP
     Route: 065
     Dates: start: 201209, end: 201212
  6. HOLOXAN 2 G - TROCKENSUBSTANZ ZUR INJEKTIONSBEREITUNG [Suspect]
     Active Substance: IFOSFAMIDE
     Indication: DIFFUSE LARGE B-CELL LYMPHOMA
     Dosage: 3 CYCLES R-ICE
     Route: 065
     Dates: start: 20100902
  7. ENDOXAN ANDQUOT;BAXTERANDQUOT; 1G TROCKENSTECHAMPULLE [Suspect]
     Active Substance: CYCLOPHOSPHAMIDE
     Indication: DIFFUSE LARGE B-CELL LYMPHOMA
     Dosage: 8 CYCLES-RCHOP
     Route: 065
     Dates: end: 200704
  8. DEXAMETHASONE. [Suspect]
     Active Substance: DEXAMETHASONE
     Indication: DIFFUSE LARGE B-CELL LYMPHOMA
     Dosage: 3 CYCLES- R-DHAP
     Route: 065
     Dates: start: 201209, end: 201212
  9. PIXUVRI [Suspect]
     Active Substance: PIXANTRONE DIMALEATE
     Indication: DIFFUSE LARGE B-CELL LYMPHOMA
     Dosage: 4 CYCLES
     Route: 065
     Dates: end: 201312
  10. MABTHERA [Suspect]
     Active Substance: RITUXIMAB
     Dosage: MAINTENANCE
     Route: 065
     Dates: start: 201301
  11. MABTHERA [Suspect]
     Active Substance: RITUXIMAB
     Dosage: 8 CYCLES - R-CHOP
     Route: 065
     Dates: end: 20070401
  12. CARBOPLATIN. [Suspect]
     Active Substance: CARBOPLATIN
     Indication: DIFFUSE LARGE B-CELL LYMPHOMA
     Dosage: 3 CYCLES R-ICE
     Route: 065
     Dates: end: 20100902
  13. CYTARABINE. [Suspect]
     Active Substance: CYTARABINE
     Indication: DIFFUSE LARGE B-CELL LYMPHOMA
     Dosage: 3 CYCLES - R-DHAP
     Route: 065
     Dates: start: 201209, end: 201212
  14. ETOPOSIDE PHOSPHATE [Suspect]
     Active Substance: ETOPOSIDE PHOSPHATE
     Indication: DIFFUSE LARGE B-CELL LYMPHOMA
     Dosage: R-ICE
     Route: 065
     Dates: end: 20100902
  15. VINCRISTINE SULFATE. [Suspect]
     Active Substance: VINCRISTINE SULFATE
     Indication: DIFFUSE LARGE B-CELL LYMPHOMA
     Dosage: 8 CYCLES-R-CHOP
     Route: 065
     Dates: end: 200704
  16. PREDNISONE. [Suspect]
     Active Substance: PREDNISONE
     Indication: DIFFUSE LARGE B-CELL LYMPHOMA
     Dosage: 8 CYCLES - R-CHOP
     Route: 065
     Dates: end: 20070401
  17. CISPLATIN. [Suspect]
     Active Substance: CISPLATIN
     Indication: DIFFUSE LARGE B-CELL LYMPHOMA
     Route: 065
     Dates: end: 200704
  18. MABTHERA [Suspect]
     Active Substance: RITUXIMAB
     Indication: DIFFUSE LARGE B-CELL LYMPHOMA
     Dosage: POLATUZUMAB-RITUXIMAB-RIBOMUSTIN
     Route: 065
     Dates: start: 20200525
  19. RIBOMUSTIN [Suspect]
     Active Substance: BENDAMUSTINE HYDROCHLORIDE
     Indication: DIFFUSE LARGE B-CELL LYMPHOMA
     Route: 065
     Dates: start: 20200525

REACTIONS (6)
  - Leukocytosis [Unknown]
  - Disease recurrence [Recovered/Resolved]
  - Cardiomyopathy [Recovered/Resolved]
  - C-reactive protein increased [Unknown]
  - Neutrophilia [Unknown]
  - Hepatitis B reactivation [Unknown]

NARRATIVE: CASE EVENT DATE: 202010
